FAERS Safety Report 9411557 (Version 2)
Quarter: 2014Q1

REPORT INFORMATION
  Report Type: Spontaneous
  Country: US (occurrence: US)
  Receive Date: 20130722
  Receipt Date: 20140225
  Transmission Date: 20141002
  Serious: No
  Sender: FDA-Public Use
  Company Number: US-BAYER-2013-087860

PATIENT
  Age: 54 Year
  Sex: Female

DRUGS (7)
  1. BETASERON [Suspect]
     Indication: MULTIPLE SCLEROSIS
     Dosage: 0.25 MG, QOD
     Route: 058
  2. BETASERON [Suspect]
     Indication: MULTIPLE SCLEROSIS
     Dosage: 0.3 MG, QOD
     Route: 058
     Dates: end: 201311
  3. ADVIL [Concomitant]
     Indication: MUSCULOSKELETAL PAIN
     Dosage: 200 MG, UNK
  4. AMPYRA [Suspect]
     Indication: GAIT DISTURBANCE
     Dosage: 10 MG, BID
     Route: 048
     Dates: start: 201306, end: 2013
  5. IRBESARTAN [Concomitant]
     Dosage: 75 MG, UNK
  6. TYLENOL [PARACETAMOL] [Concomitant]
     Indication: MUSCULOSKELETAL PAIN
     Dosage: 325 MG, UNK
  7. CALCIUM [Concomitant]
     Dosage: 500 UNK, UNK

REACTIONS (4)
  - Movement disorder [Not Recovered/Not Resolved]
  - Gait disturbance [Not Recovered/Not Resolved]
  - Musculoskeletal pain [Recovered/Resolved]
  - Injection site mass [Not Recovered/Not Resolved]
